FAERS Safety Report 15347654 (Version 2)
Quarter: 2018Q3

REPORT INFORMATION
  Report Type: Spontaneous
  Country: US (occurrence: US)
  Receive Date: 20180904
  Receipt Date: 20180904
  Transmission Date: 20181010
  Serious: Yes (Other)
  Sender: FDA-Public Use
  Company Number: US-BAYER-2018-161237

PATIENT
  Age: 68 Year
  Sex: Female
  Weight: 48.98 kg

DRUGS (1)
  1. ALKA?SELTZER HEARTBURN PLUS GAS RELIEFCHEWS TROPICAL PUNCH [Suspect]
     Active Substance: CALCIUM CARBONATE\DIMETHICONE
     Indication: GASTROINTESTINAL DISORDER
     Dosage: 1 DF, ONCE
     Route: 048
     Dates: start: 20180812, end: 20180812

REACTIONS (4)
  - Tooth fracture [Not Recovered/Not Resolved]
  - Dental implantation [None]
  - Dental restoration failure [Recovered/Resolved]
  - Tooth injury [Not Recovered/Not Resolved]

NARRATIVE: CASE EVENT DATE: 201808
